FAERS Safety Report 8779519 (Version 1)
Quarter: 2012Q4

REPORT INFORMATION
  Report Type: Report from Study
  Country: HU (occurrence: HU)
  Receive Date: 20120912
  Receipt Date: 20120912
  Transmission Date: 20130627
  Serious: Yes (Death, Other)
  Sender: FDA-Public Use
  Company Number: HU-ROCHE-1118118

PATIENT
  Age: 74 Year
  Sex: Male

DRUGS (2)
  1. XELODA [Suspect]
     Indication: PRODUCT USED FOR UNKNOWN INDICATION
     Dosage: Dose 2 X 4
     Route: 048
     Dates: start: 20100707
  2. XELODA [Suspect]
     Route: 065
     Dates: start: 20101018

REACTIONS (2)
  - Death [Fatal]
  - Neoplasm [Unknown]
